FAERS Safety Report 6282959-3 (Version None)
Quarter: 2009Q3

REPORT INFORMATION
  Report Type: 
  Country: None (occurrence: None)
  Receive Date: 20090724
  Receipt Date: 20090715
  Transmission Date: 20100115
  Serious: Yes (Hospitalization)
  Sender: FDA-Public Use
  Company Number: FR-SANOFI-SYNTHELABO-A02200901868

PATIENT
  Sex: Female

DRUGS (9)
  1. TAHOR [Concomitant]
     Indication: DRUG USE FOR UNKNOWN INDICATION
     Dosage: UNK
     Route: 048
     Dates: start: 20090118, end: 20090518
  2. NEXIUM [Concomitant]
     Indication: DRUG USE FOR UNKNOWN INDICATION
     Dosage: UNK
     Route: 048
     Dates: start: 20090118, end: 20090518
  3. ATARAX [Suspect]
     Indication: ANXIETY
     Route: 048
     Dates: start: 20090201, end: 20090518
  4. CACIT VITAMINE [Suspect]
     Indication: VITAMIN D DEFICIENCY
     Route: 048
     Dates: start: 20090201
  5. COVERSYL [Suspect]
     Indication: DRUG USE FOR UNKNOWN INDICATION
     Route: 048
     Dates: start: 20090118
  6. LEVOTHYROX [Suspect]
     Indication: HYPOTHYROIDISM
     Route: 048
     Dates: start: 20090118
  7. ACEBUTOLOL [Suspect]
     Indication: DRUG USE FOR UNKNOWN INDICATION
     Route: 048
     Dates: start: 20090118
  8. KARDEGIC [Suspect]
     Indication: THROMBOSIS PROPHYLAXIS
     Route: 048
     Dates: start: 20090118
  9. PLAVIX [Suspect]
     Indication: THROMBOSIS PROPHYLAXIS
     Route: 048
     Dates: start: 20090118

REACTIONS (2)
  - LUPUS-LIKE SYNDROME [None]
  - TOXIC SKIN ERUPTION [None]
